FAERS Safety Report 23041730 (Version 1)
Quarter: 2023Q4

REPORT INFORMATION
  Report Type: Report from Study
  Country: ES (occurrence: ES)
  Receive Date: 20231007
  Receipt Date: 20231007
  Transmission Date: 20240109
  Serious: Yes (Hospitalization)
  Sender: FDA-Public Use
  Company Number: None

PATIENT
  Age: 80 Year
  Sex: Female

DRUGS (3)
  1. PACLITAXEL [Suspect]
     Active Substance: PACLITAXEL
     Indication: Breast neoplasm
     Dosage: 1ST CYCLE 27/06/2019- LAST CYCLE 14/08/2019
     Dates: start: 20190627, end: 20190814
  2. HERCEPTIN [Suspect]
     Active Substance: TRASTUZUMAB
     Indication: Breast neoplasm
     Dosage: 1 CYCLE 27/06/2019- LAST CYCLE 14/08/2019
     Dates: start: 20190627, end: 20190814
  3. PERTUZUMAB [Suspect]
     Active Substance: PERTUZUMAB
     Indication: Breast neoplasm
     Dosage: 1 CYCLE 27/06/2019- LAST CYCLE 14/08/2019
     Dates: start: 20190627, end: 20190814

REACTIONS (2)
  - Pyrexia [Recovering/Resolving]
  - Hepatitis acute [Recovering/Resolving]

NARRATIVE: CASE EVENT DATE: 20190817
